FAERS Safety Report 8186699-5 (Version None)
Quarter: 2012Q1

REPORT INFORMATION
  Report Type: 
  Country: None (occurrence: None)
  Receive Date: 20120306
  Receipt Date: 20120224
  Transmission Date: 20120608
  Serious: Yes (Hospitalization, Other)
  Sender: FDA-Public Use
  Company Number: JP-SANOFI-AVENTIS-2012SA011801

PATIENT
  Age: 35 Year
  Sex: Male

DRUGS (4)
  1. ZYPREXA [Suspect]
     Route: 065
  2. PIOGLITAZONE HYDROCHLORIDE [Suspect]
     Indication: DIABETES MELLITUS
     Route: 048
     Dates: start: 20090701, end: 20101101
  3. AMARYL [Suspect]
     Indication: DIABETES MELLITUS
     Route: 048
     Dates: start: 20090901, end: 20101101
  4. CRESTOR [Suspect]
     Indication: HYPERLIPIDAEMIA
     Route: 048
     Dates: start: 20090201, end: 20101101

REACTIONS (1)
  - NEUROLEPTIC MALIGNANT SYNDROME [None]
